FAERS Safety Report 9268154 (Version 1)
Quarter: 2013Q2

REPORT INFORMATION
  Report Type: Spontaneous
  Country: US (occurrence: US)
  Receive Date: 20130502
  Receipt Date: 20130502
  Transmission Date: 20140414
  Serious: Yes (Hospitalization)
  Sender: FDA-Public Use
  Company Number: US-ALEXION-A201201390

PATIENT
  Age: 73 Year
  Sex: Female

DRUGS (11)
  1. SOLIRIS 300MG [Suspect]
     Indication: HAEMOLYTIC URAEMIC SYNDROME
     Dosage: 1200 MG, Q2W
     Route: 042
     Dates: start: 20120612, end: 20120612
  2. SOLIRIS 300MG [Suspect]
     Dosage: 900 MG, QW X4
     Route: 042
     Dates: start: 20120515, end: 20120612
  3. NEXIUM [Concomitant]
     Indication: GASTROOESOPHAGEAL REFLUX DISEASE
     Dosage: 20 MG, QD
     Route: 048
  4. LIPITOR [Concomitant]
     Indication: HYPERLIPIDAEMIA
     Dosage: 20 MG, QD
     Route: 048
  5. VITAMIN D [Concomitant]
     Indication: SUPPLEMENTATION THERAPY
     Dosage: 1 TAB QD
  6. CALCIUM CARBONATE [Concomitant]
     Indication: SUPPLEMENTATION THERAPY
     Dosage: 1000 MG, QD
  7. NIFEDIPINE ER [Concomitant]
     Indication: HYPERTENSION
     Dosage: 30 MG, QD
     Route: 048
  8. IRON [Concomitant]
     Indication: SUPPLEMENTATION THERAPY
     Dosage: 325 MG, QD
     Route: 048
  9. FOLIC ACID [Concomitant]
     Indication: SUPPLEMENTATION THERAPY
     Dosage: 1 MG, QD
     Route: 048
  10. OXYCODONE HCL ER [Concomitant]
     Indication: ARTHRALGIA
     Dosage: 20 MG, BID
     Route: 048
  11. PERCOCET [Concomitant]
     Indication: ARTHRALGIA
     Dosage: 1 TO 2 TABS Q4H PRN
     Route: 048

REACTIONS (1)
  - Thrombotic thrombocytopenic purpura [Recovering/Resolving]
